FAERS Safety Report 12563509 (Version 2)
Quarter: 2017Q4

REPORT INFORMATION
  Report Type: Report from Study
  Country: CO (occurrence: CO)
  Receive Date: 20160715
  Receipt Date: 20171026
  Transmission Date: 20180320
  Serious: Yes (Other)
  Sender: FDA-Public Use
  Company Number: CO-REGENERON PHARMACEUTICALS, INC.-2016-19312

PATIENT

DRUGS (5)
  1. EYLEA [Suspect]
     Active Substance: AFLIBERCEPT
     Indication: AGE-RELATED MACULAR DEGENERATION
     Dosage: UNK (OD)
     Dates: start: 20141216
  2. EYLEA [Suspect]
     Active Substance: AFLIBERCEPT
     Dosage: UNK (OD - LAST INJECTION)
     Dates: start: 20150616, end: 20150616
  3. EYLEA [Suspect]
     Active Substance: AFLIBERCEPT
     Dosage: UNK (OD)
     Dates: start: 20150416, end: 20150416
  4. EYLEA [Suspect]
     Active Substance: AFLIBERCEPT
     Dosage: UNK (OD)
     Dates: start: 20150116, end: 20150116
  5. EYLEA [Suspect]
     Active Substance: AFLIBERCEPT
     Dosage: UNK (OD)
     Dates: start: 20150216, end: 20150216

REACTIONS (2)
  - Eye haemorrhage [Not Recovered/Not Resolved]
  - Inappropriate schedule of drug administration [Unknown]

NARRATIVE: CASE EVENT DATE: 2015
